FAERS Safety Report 5688365-4 (Version None)
Quarter: 2008Q1

REPORT INFORMATION
  Report Type: 
  Country: None (occurrence: None)
  Receive Date: 20080328
  Receipt Date: 20080328
  Transmission Date: 20080703
  Serious: No
  Sender: FDA-Public Use
  Company Number: None

PATIENT
  Sex: Female
  Weight: 74.8435 kg

DRUGS (3)
  1. ENBREL [Suspect]
     Indication: PSORIASIS
     Dosage: 50MG QWEEK SQ
     Route: 058
     Dates: start: 20050305, end: 20080317
  2. LOTENSIN [Concomitant]
  3. METFORMIN HCL [Concomitant]

REACTIONS (3)
  - CONDITION AGGRAVATED [None]
  - PSORIASIS [None]
  - TUBERCULIN TEST POSITIVE [None]
